FAERS Safety Report 9421606 (Version 1)
Quarter: 2013Q3

REPORT INFORMATION
  Report Type: Spontaneous
  Country: US (occurrence: US)
  Receive Date: 20130726
  Receipt Date: 20130726
  Transmission Date: 20140515
  Serious: Yes (Hospitalization, Other)
  Sender: FDA-Public Use
  Company Number: 2013SP005384

PATIENT
  Age: 57 Year
  Sex: Female

DRUGS (14)
  1. VANCOMYCIN [Suspect]
     Indication: CLOSTRIDIUM DIFFICILE INFECTION
     Dates: start: 2012
  2. CLINDAMYCIN HYDROCHLORIDE [Suspect]
     Indication: TOOTH INFECTION
     Dates: start: 20120615
  3. CLINDAMYCIN HYDROCHLORIDE [Suspect]
     Indication: TOOTH INFECTION
  4. CLINDAMYCIN HYDROCHLORIDE [Suspect]
     Indication: TOOTH INFECTION
  5. CLINDAMYCIN [Suspect]
     Indication: TOOTH INFECTION
     Route: 048
     Dates: start: 20120521
  6. CLINDAMYCIN [Suspect]
     Indication: TOOTH INFECTION
  7. CLINDAMYCIN [Suspect]
     Indication: TOOTH INFECTION
  8. METRONIDAZOLE [Suspect]
     Indication: CLOSTRIDIUM DIFFICILE INFECTION
     Dates: start: 20120713
  9. METRONIDAZOLE [Suspect]
     Indication: CLOSTRIDIUM DIFFICILE INFECTION
     Dates: start: 20120917
  10. METRONIDAZOLE [Suspect]
     Indication: CLOSTRIDIUM DIFFICILE INFECTION
  11. FIDAXOMICIN [Suspect]
     Indication: CLOSTRIDIUM DIFFICILE INFECTION
  12. FIDAXOMICIN [Suspect]
     Indication: CLOSTRIDIUM DIFFICILE INFECTION
  13. FIDAXOMICIN [Suspect]
     Indication: CLOSTRIDIUM DIFFICILE INFECTION
  14. CLONAZEPAM [Concomitant]
     Indication: ANXIETY

REACTIONS (19)
  - Depression [Unknown]
  - Suicidal ideation [Unknown]
  - Apparent death [Unknown]
  - Liver disorder [Unknown]
  - Clostridium difficile infection [Unknown]
  - Aphagia [Unknown]
  - Diarrhoea [Not Recovered/Not Resolved]
  - Nausea [Unknown]
  - Vomiting [Unknown]
  - Local swelling [Unknown]
  - Neuropathy peripheral [Unknown]
  - Activities of daily living impaired [Unknown]
  - Drug ineffective [Unknown]
  - Blepharitis [Unknown]
  - Malaise [Unknown]
  - Erythema [Unknown]
  - Weight decreased [Unknown]
  - Nightmare [Unknown]
  - Transplant [Unknown]
